FAERS Safety Report 5691857-5 (Version None)
Quarter: 2008Q1

REPORT INFORMATION
  Report Type: 
  Country: None (occurrence: None)
  Receive Date: 20080331
  Receipt Date: 20080317
  Transmission Date: 20080703
  Serious: No
  Sender: FDA-Public Use
  Company Number: 000246

PATIENT
  Age: 62 Year
  Sex: Male

DRUGS (3)
  1. PLETAL [Suspect]
     Indication: INTERMITTENT CLAUDICATION
     Dosage: 100 MG, QD ORAL
     Route: 048
     Dates: start: 20070413, end: 20070729
  2. CLOPIDOGREL [Concomitant]
  3. SIMVASTATIN [Concomitant]

REACTIONS (3)
  - BALANCE DISORDER [None]
  - DIZZINESS [None]
  - SOMNOLENCE [None]
